FAERS Safety Report 8484161-3 (Version None)
Quarter: 2012Q3

REPORT INFORMATION
  Report Type: 
  Country: None (occurrence: None)
  Receive Date: 20120703
  Receipt Date: 20120625
  Transmission Date: 20120928
  Serious: Yes (Hospitalization)
  Sender: FDA-Public Use
  Company Number: US-BAYER-2012-051484

PATIENT
  Age: 18 Year
  Sex: Female
  Weight: 52.154 kg

DRUGS (6)
  1. YAZ [Suspect]
     Indication: PREMENSTRUAL SYNDROME
  2. TRI SPRINTEC LOW [Concomitant]
  3. NSAID'S [Concomitant]
     Indication: COSTOCHONDRITIS
  4. YAZ [Suspect]
  5. YAZ [Suspect]
     Indication: CONTRACEPTION
     Dosage: UNK
     Dates: start: 20090202, end: 20100504
  6. YAZ [Suspect]
     Indication: DYSMENORRHOEA

REACTIONS (2)
  - PULMONARY INFARCTION [None]
  - PULMONARY EMBOLISM [None]
